FAERS Safety Report 8656769 (Version 2)
Quarter: 2012Q4

REPORT INFORMATION
  Report Type: 
  Country: US (occurrence: US)
  Receive Date: 20120709
  Receipt Date: 20120904
  Transmission Date: 20130627
  Serious: No
  Sender: FDA-Public Use
  Company Number: US-AMGEN-USASP2012038637

PATIENT
  Age: 67 Year
  Sex: Female
  Weight: 65.31 kg

DRUGS (8)
  1. ENBREL [Suspect]
     Indication: RHEUMATOID ARTHRITIS
     Dosage: 50 mg, qwk
     Route: 058
     Dates: start: 20120412
  2. ENBREL [Suspect]
     Indication: MIXED CONNECTIVE TISSUE DISEASE
  3. METHOTREXATE [Concomitant]
     Indication: RHEUMATOID ARTHRITIS
     Dosage: 2.5 mg, tid
     Route: 048
  4. CALCIUM [Concomitant]
     Indication: OSTEOPOROSIS
     Dosage: 500 mg, qd
     Route: 048
  5. VITAMIN D /00107901/ [Concomitant]
     Indication: OSTEOPOROSIS
     Dosage: 1000 mg, 4 tabs daily
     Route: 048
  6. NAPROXEN [Concomitant]
     Indication: RHEUMATOID ARTHRITIS
     Dosage: 220 mg, bid
     Route: 048
  7. FOLIC ACID [Concomitant]
     Indication: RHEUMATOID ARTHRITIS
     Dosage: 1 mg, qd
     Route: 048
  8. HYDROXYCHLOROQUINE [Concomitant]
     Indication: RHEUMATOID ARTHRITIS
     Dosage: 1 tablet, bid
     Route: 048

REACTIONS (2)
  - Stomatitis [Not Recovered/Not Resolved]
  - Candidiasis [Not Recovered/Not Resolved]
